FAERS Safety Report 19704001 (Version 3)
Quarter: 2024Q1

REPORT INFORMATION
  Report Type: Report from Study
  Country: MX (occurrence: MX)
  Receive Date: 20210816
  Receipt Date: 20240312
  Transmission Date: 20240409
  Serious: Yes (Other)
  Sender: FDA-Public Use
  Company Number: NVSC2021MX184241

PATIENT
  Sex: Male
  Weight: 78 kg

DRUGS (2)
  1. MYFORTIC [Suspect]
     Active Substance: MYCOPHENOLATE SODIUM
     Indication: Renal transplant
     Dosage: 2 DF, QD (360 MG)
     Route: 048
     Dates: start: 2011
  2. EVEROLIMUS [Suspect]
     Active Substance: EVEROLIMUS
     Indication: Renal transplant
     Dosage: 2 DF, QD
     Route: 048
     Dates: start: 2011

REACTIONS (4)
  - Blindness [Unknown]
  - Blindness unilateral [Unknown]
  - Visual impairment [Not Recovered/Not Resolved]
  - Diabetic complication [Unknown]

NARRATIVE: CASE EVENT DATE: 20120101
